FAERS Safety Report 15209577 (Version 5)
Quarter: 2018Q4

REPORT INFORMATION
  Report Type: Report from Study
  Country: ZA (occurrence: ZA)
  Receive Date: 20180727
  Receipt Date: 20181019
  Transmission Date: 20190204
  Serious: Yes (Other)
  Sender: FDA-Public Use
  Company Number: ZA-JNJFOC-20180628526

PATIENT
  Age: 58 Year
  Sex: Female
  Weight: 53.4 kg

DRUGS (19)
  1. ETHIONAMIDE [Concomitant]
     Active Substance: ETHIONAMIDE
     Indication: TUBERCULOSIS
     Route: 048
     Dates: start: 20180504, end: 20180531
  2. LINEZOLID. [Suspect]
     Active Substance: LINEZOLID
     Indication: TUBERCULOSIS
     Route: 048
     Dates: start: 20180601, end: 20180609
  3. LINEZOLID. [Suspect]
     Active Substance: LINEZOLID
     Indication: TUBERCULOSIS
     Route: 048
     Dates: start: 20180629, end: 20180721
  4. ACTRAPHANE [Concomitant]
     Active Substance: INSULIN HUMAN
     Indication: DIABETES MELLITUS
     Dosage: 30 U
     Route: 058
     Dates: start: 201805
  5. PETHIDINE [Concomitant]
     Active Substance: MEPERIDINE
     Indication: INJECTION SITE PAIN
     Route: 030
     Dates: start: 20180525, end: 20180525
  6. PYRIDOXINE [Concomitant]
     Active Substance: PYRIDOXINE
     Indication: PROPHYLAXIS
     Route: 048
     Dates: start: 20180515
  7. ACTRAPHANE [Concomitant]
     Active Substance: INSULIN HUMAN
     Indication: DIABETES MELLITUS
     Dosage: 18 U
     Route: 058
     Dates: start: 201805
  8. ISONIAZID. [Concomitant]
     Active Substance: ISONIAZID
     Indication: TUBERCULOSIS
     Route: 048
     Dates: start: 20180515, end: 20180531
  9. HYDROCHLOROTHIAZIDE. [Concomitant]
     Active Substance: HYDROCHLOROTHIAZIDE
     Indication: HYPERTENSION
     Route: 048
     Dates: start: 201706
  10. TRAMAL [Concomitant]
     Active Substance: TRAMADOL
     Indication: INJECTION SITE PAIN
     Route: 048
     Dates: start: 20180526, end: 20180603
  11. TMC207 [Suspect]
     Active Substance: BEDAQUILINE
     Indication: TUBERCULOSIS
     Route: 048
     Dates: start: 20180601, end: 20180609
  12. METHYL SALICYLATE [Concomitant]
     Active Substance: METHYL SALICYLATE
     Indication: INJECTION SITE PAIN
     Route: 061
     Dates: start: 20180528, end: 20180531
  13. LINEZOLID. [Suspect]
     Active Substance: LINEZOLID
     Indication: TUBERCULOSIS
     Route: 048
     Dates: start: 20180515, end: 20180531
  14. HYDROCHLOROTHIAZIDE. [Concomitant]
     Active Substance: HYDROCHLOROTHIAZIDE
     Indication: HYPERTENSION
     Route: 065
     Dates: start: 201706
  15. PRETOMANID [Suspect]
     Active Substance: PRETOMANID
     Indication: TUBERCULOSIS
     Route: 048
     Dates: start: 20180601, end: 20180609
  16. CYCLOMYDRIL [Concomitant]
     Active Substance: CYCLOPENTOLATE HYDROCHLORIDE\PHENYLEPHRINE HYDROCHLORIDE
     Indication: SLIT-LAMP EXAMINATION
     Route: 061
     Dates: start: 20180531, end: 20180531
  17. CLOFAZIMINE [Concomitant]
     Active Substance: CLOFAZIMINE
     Indication: TUBERCULOSIS
     Route: 048
     Dates: start: 20180515, end: 20180531
  18. PYRAZINAMIDE. [Concomitant]
     Active Substance: PYRAZINAMIDE
     Indication: TUBERCULOSIS
     Route: 048
     Dates: start: 20180504, end: 20180531
  19. LEVOFLOXACIN. [Concomitant]
     Active Substance: LEVOFLOXACIN
     Indication: TUBERCULOSIS
     Route: 048
     Dates: start: 20180515, end: 20180531

REACTIONS (2)
  - Hepatic enzyme abnormal [Unknown]
  - Drug-induced liver injury [Recovering/Resolving]

NARRATIVE: CASE EVENT DATE: 20180608
